FAERS Safety Report 8249047-8 (Version None)
Quarter: 2012Q2

REPORT INFORMATION
  Report Type: 
  Country: None (occurrence: None)
  Receive Date: 20120402
  Receipt Date: 20120321
  Transmission Date: 20120825
  Serious: Yes (Hospitalization, Other)
  Sender: FDA-Public Use
  Company Number: HU-BAYER-2012-027947

PATIENT
  Age: 44 Year
  Sex: Female

DRUGS (1)
  1. MIRENA [Suspect]
     Dosage: 20 ?G/D, CONT
     Route: 015
     Dates: start: 20111015, end: 20120126

REACTIONS (4)
  - DEVICE DISLOCATION [None]
  - ENDOMETRITIS [None]
  - ABDOMINAL DISCOMFORT [None]
  - GENITAL HAEMORRHAGE [None]
